FAERS Safety Report 6135726-5 (Version None)
Quarter: 2009Q1

REPORT INFORMATION
  Report Type: 
  Country: None (occurrence: None)
  Receive Date: 20090327
  Receipt Date: 20090316
  Transmission Date: 20090719
  Serious: Yes (Other)
  Sender: FDA-Public Use
  Company Number: NO-PFIZER INC-2009187571

PATIENT

DRUGS (1)
  1. DOSTINEX [Suspect]
     Dosage: FREQUENCY: X 1, ONCE A WEEK;
     Route: 048

REACTIONS (1)
  - AORTIC ANEURYSM [None]
